FAERS Safety Report 20862673 (Version 2)
Quarter: 2022Q2

REPORT INFORMATION
  Report Type: Spontaneous
  Country: IE (occurrence: IE)
  Receive Date: 20220523
  Receipt Date: 20220608
  Transmission Date: 20220720
  Serious: Yes (Life-Threatening, Hospitalization, Disabling, Other)
  Sender: FDA-Public Use
  Company Number: None

PATIENT
  Age: 79 Year
  Sex: Male

DRUGS (27)
  1. CLINDAMYCIN [Suspect]
     Active Substance: CLINDAMYCIN
     Dosage: 600 MG (ONLY ADMINISTERED 1 DOSE OF 600MG)
     Route: 042
     Dates: start: 20220329, end: 20220329
  2. ZYVOX [Concomitant]
     Active Substance: LINEZOLID
     Dosage: 600 MG, 2X/DAY EVERY 12 H (STARTED EVENING OF SUSPECTED REACTION TO CLINDAMYCIN)
     Dates: start: 20220329
  3. FLUTICASONE FUROATE\VILANTEROL TRIFENATATE [Concomitant]
     Active Substance: FLUTICASONE FUROATE\VILANTEROL TRIFENATATE
     Dosage: 1X/DAY
  4. TRAMADOL [Concomitant]
     Active Substance: TRAMADOL
     Dosage: 50 MG, 3X/DAY
     Route: 048
  5. ALBUTEROL [Concomitant]
     Active Substance: ALBUTEROL
     Dosage: 4X/DAY (EVERY 6 H)
  6. PIPERCIN [Concomitant]
     Dosage: 3X/DAY EVERY 8 H (STARTED FOLLOWING SUSPECTED REACTION TO CLINDAMYCIN)
     Dates: start: 20220329
  7. ACETAMINOPHEN [Concomitant]
     Active Substance: ACETAMINOPHEN
     Dosage: 500 MG, 4X/DAY EVERY 6 H (1000 MG, 4X/DAY)
  8. MOVICOL [Concomitant]
     Active Substance: POLYETHYLENE GLYCOL 3350\POTASSIUM CHLORIDE\SODIUM BICARBONATE\SODIUM CHLORIDE
     Dosage: 2X/DAY EVERY 12 H
  9. FLUTICASONE FUROATE [Concomitant]
     Active Substance: FLUTICASONE FUROATE
     Dosage: 1X/DAY EVERY 24 H
  10. DUTASTERIDE\TAMSULOSIN [Concomitant]
     Active Substance: DUTASTERIDE\TAMSULOSIN
     Dosage: 1X/DAY EVERY 24 H
  11. PREGABALIN [Concomitant]
     Active Substance: PREGABALIN
     Dosage: 75 MG, 2X/DAY EVERY 12 H
  12. ENOXAPARIN SODIUM [Concomitant]
     Active Substance: ENOXAPARIN SODIUM
     Indication: Thrombosis prophylaxis
     Dosage: 40 MG, 1X/DAY EVERY 24 H
     Route: 058
  13. SOLPADOL Caplets [Concomitant]
     Dosage: 4X/DAY EVERY 6 H
  14. AMITRIPTYLINE [Concomitant]
     Active Substance: AMITRIPTYLINE
     Dosage: 25 MG NOCTE
  15. PANTOPRAZOLE [Concomitant]
     Active Substance: PANTOPRAZOLE
     Dosage: 40 MG, 1X/DAY EVERY 24 H
  16. LACTULOSE [Concomitant]
     Active Substance: LACTULOSE
     Dosage: 15 ML, 3X/DAY, EVERY 8 H
  17. INCRUSE ELLIPTA [Concomitant]
     Active Substance: UMECLIDINIUM BROMIDE
     Dosage: 1X/DAY
  18. AMLODIPINE [Concomitant]
     Active Substance: AMLODIPINE BESYLATE
     Dosage: 5 MG, 1X/DAY EVERY 24 H
  19. GENTAMICIN [Concomitant]
     Active Substance: GENTAMICIN
     Dosage: 350 MG STAT AT 16:45
     Dates: start: 20220329, end: 20220329
  20. FLUCLOXACILLIN [Concomitant]
     Active Substance: FLUCLOXACILLIN
     Dosage: 2 MG (STOPPED FOLLOWING SUSPECTED REACTION TO CLINDAMYCIN)
     Dates: start: 20220328, end: 20220329
  21. HYDROCORTISONE\MICONAZOLE NITRATE [Concomitant]
     Active Substance: HYDROCORTISONE\MICONAZOLE NITRATE
     Dosage: 2X/DAY
  22. IRON [Concomitant]
     Active Substance: IRON
     Dosage: 305 MG, 1X/DAY
  23. IPRATROPIUM BROMIDE [Concomitant]
     Active Substance: IPRATROPIUM BROMIDE
  24. BISOPROLOL [Concomitant]
     Active Substance: BISOPROLOL
     Dosage: 5 MG, 1X/DAY EVERY 24 H
  25. DICLOFENAC [Concomitant]
     Active Substance: DICLOFENAC
     Dosage: 75 MG, 2X/DAY
  26. FUROSEMIDE [Concomitant]
     Active Substance: FUROSEMIDE
     Dosage: 20 MG, 1X/DAY EVERY 24 H
  27. OXYCODONE HYDROCHLORIDE [Concomitant]
     Active Substance: OXYCODONE HYDROCHLORIDE
     Dosage: 2.5 MG PO (STAT DOSES)
     Route: 048
     Dates: start: 20220326, end: 20220327

REACTIONS (11)
  - Gastrointestinal sounds abnormal [Not Recovered/Not Resolved]
  - Vomiting [Not Recovered/Not Resolved]
  - Hypotension [Not Recovered/Not Resolved]
  - Scrotal erythema [Not Recovered/Not Resolved]
  - Scrotal swelling [Not Recovered/Not Resolved]
  - Scrotal pain [Not Recovered/Not Resolved]
  - Abdominal tenderness [Not Recovered/Not Resolved]
  - Wheezing [Not Recovered/Not Resolved]
  - Oxygen saturation decreased [Not Recovered/Not Resolved]
  - Rash erythematous [Not Recovered/Not Resolved]
  - Abdominal distension [Not Recovered/Not Resolved]

NARRATIVE: CASE EVENT DATE: 20220329
